FAERS Safety Report 7804344-2 (Version None)
Quarter: 2011Q4

REPORT INFORMATION
  Report Type: 
  Country: None (occurrence: None)
  Receive Date: 20111010
  Receipt Date: 20111005
  Transmission Date: 20120403
  Serious: Yes (Other)
  Sender: FDA-Public Use
  Company Number: GB-BRISTOL-MYERS SQUIBB COMPANY-15853252

PATIENT
  Age: 56 Year
  Sex: Male
  Weight: 67 kg

DRUGS (11)
  1. RISPERIDONE [Concomitant]
     Route: 048
     Dates: start: 20110214
  2. CALAMINE [Concomitant]
     Indication: DRY SKIN
     Dosage: FORMU: CREAM
     Route: 061
     Dates: start: 20100805
  3. PROCYCLIDINE HYDROCHLORIDE 2MG TAB [Concomitant]
     Indication: EXTRAPYRAMIDAL DISORDER
     Route: 048
     Dates: start: 20100723
  4. CALAMINE [Concomitant]
     Indication: ECZEMA
     Dosage: FORMU: CREAM
     Route: 061
     Dates: start: 20100805
  5. ANUSOL [Concomitant]
     Indication: HAEMORRHOIDS
     Dosage: 1  DF= 1APPL, FORMU: CREAM
     Route: 061
     Dates: start: 20110420
  6. VALPROATE SODIUM [Concomitant]
     Dosage: FORMU: LIQUID
     Route: 048
     Dates: start: 20101022
  7. AMOXICILLIN [Concomitant]
     Indication: HELICOBACTER INFECTION
     Dates: start: 20110418
  8. CLARITHROMYCIN [Concomitant]
     Indication: HELICOBACTER INFECTION
     Dates: start: 20110418
  9. ABILIFY [Suspect]
     Indication: SCHIZOPHRENIA, PARANOID TYPE
     Dosage: DOASGE: 10MG 1-14OCT10, 15MG 15OCT10-7JAN11, 30MG 8JAN-3MAY11.
     Route: 048
     Dates: start: 20101001, end: 20110503
  10. LANSOPRAZOLE [Concomitant]
     Indication: HELICOBACTER INFECTION
     Dates: start: 20110426
  11. LACTULOSE [Concomitant]
     Indication: CONSTIPATION
     Route: 048
     Dates: start: 20110408

REACTIONS (3)
  - NAUSEA [None]
  - PSYCHOTIC DISORDER [None]
  - TREMOR [None]
